FAERS Safety Report 15715190 (Version 2)
Quarter: 2019Q1

REPORT INFORMATION
  Report Type: Spontaneous
  Country: JP (occurrence: JP)
  Receive Date: 20181212
  Receipt Date: 20190308
  Transmission Date: 20190417
  Serious: Yes (Other)
  Sender: FDA-Public Use
  Company Number: JP-TEVA-2018-JP-985833

PATIENT
  Age: 72 Year
  Sex: Female

DRUGS (2)
  1. BENET [Suspect]
     Active Substance: RISEDRONATE SODIUM
     Indication: PRODUCT USED FOR UNKNOWN INDICATION
     Dosage: UNKNOWN FREQUENCY
     Route: 048
     Dates: start: 2017, end: 201812
  2. KARY UNI [Concomitant]
     Active Substance: PIRENOXINE

REACTIONS (8)
  - Oedema [Unknown]
  - Angioedema [Unknown]
  - Influenza like illness [Unknown]
  - Cough [Unknown]
  - Overdose [Unknown]
  - Drug hypersensitivity [Unknown]
  - Dermatitis [Unknown]
  - Inappropriate schedule of product administration [Unknown]

NARRATIVE: CASE EVENT DATE: 2017
